FAERS Safety Report 8476091-8 (Version None)
Quarter: 2012Q2

REPORT INFORMATION
  Report Type: 
  Country: None (occurrence: None)
  Receive Date: 20120402
  Receipt Date: 20110411
  Transmission Date: 20120825
  Serious: Yes (Hospitalization, Other)
  Sender: FDA-Public Use
  Company Number: 276835USA

PATIENT
  Age: 71 Year
  Sex: Female

DRUGS (1)
  1. ALENDRONATE SODIUM [Suspect]
     Indication: OSTEOPOROSIS
     Dosage: 10 MG, (70 MG, 1 IN  1 WK), ORAL
     Route: 048
     Dates: start: 20090101, end: 20110406

REACTIONS (12)
  - HYPERSENSITIVITY [None]
  - GINGIVAL PAIN [None]
  - URTICARIA [None]
  - FEELING ABNORMAL [None]
  - BACTERIAL ALLERGY [None]
  - TOOTH INFECTION [None]
  - CHEST DISCOMFORT [None]
  - PARAESTHESIA [None]
  - PRURITUS [None]
  - PAIN IN JAW [None]
  - RASH [None]
  - BLOOD PRESSURE INCREASED [None]
